FAERS Safety Report 19711920 (Version 4)
Quarter: 2021Q3

REPORT INFORMATION
  Report Type: Report from Study
  Country: US (occurrence: US)
  Receive Date: 20210816
  Receipt Date: 20210923
  Transmission Date: 20211014
  Serious: Yes (Death, Hospitalization, Other)
  Sender: FDA-Public Use
  Company Number: US-TAKEDA-2021TUS050384

PATIENT
  Age: 76 Year
  Sex: Male

DRUGS (4)
  1. LIBTAYO [Concomitant]
     Active Substance: CEMIPLIMAB-RWLC
     Dosage: UNK
  2. PONATINIB [Suspect]
     Active Substance: PONATINIB
     Indication: ACUTE LYMPHOCYTIC LEUKAEMIA
     Dosage: 30 MILLIGRAM, QD
     Route: 048
     Dates: start: 202107
  3. PONATINIB [Suspect]
     Active Substance: PONATINIB
     Dosage: 15 MILLIGRAM
     Route: 065
  4. MIDORINE [Concomitant]
     Active Substance: MIDODRINE
     Dosage: UNK

REACTIONS (2)
  - Wound infection [Unknown]
  - Death [Fatal]

NARRATIVE: CASE EVENT DATE: 20210907
